FAERS Safety Report 21490236 (Version 1)
Quarter: 2022Q4

REPORT INFORMATION
  Report Type: Other
  Country: IN (occurrence: None)
  Receive Date: 20221021
  Receipt Date: 20221021
  Transmission Date: 20230113
  Serious: Yes (Death)
  Sender: FDA-Public Use
  Company Number: IN-ROCHE-2657280

PATIENT
  Age: 43 Year
  Sex: Female

DRUGS (1)
  1. TECENTRIQ [Suspect]
     Active Substance: ATEZOLIZUMAB
     Indication: Triple negative breast cancer
     Route: 041
     Dates: start: 20200718

REACTIONS (4)
  - Pain [Fatal]
  - Respiratory disorder [Fatal]
  - Cardiac disorder [Fatal]
  - Death [Fatal]

NARRATIVE: CASE EVENT DATE: 20200808
